FAERS Safety Report 11336740 (Version 1)
Quarter: 2015Q3

REPORT INFORMATION
  Report Type: Report from Study
  Country: JP (occurrence: JP)
  Receive Date: 20150804
  Receipt Date: 20150804
  Transmission Date: 20151125
  Serious: Yes (Hospitalization)
  Sender: FDA-Public Use
  Company Number: JP-MERCK-1508JPN001213

PATIENT
  Age: 68 Year
  Sex: Male

DRUGS (11)
  1. BAYASPIRIN [Concomitant]
     Active Substance: ASPIRIN
     Indication: RETINAL VEIN THROMBOSIS
     Dosage: 100 MG, QD. FORMULATION: POR
     Route: 048
  2. CELSENTRI [Suspect]
     Active Substance: MARAVIROC
     Dosage: 1200 MG, QD
     Route: 048
     Dates: start: 20120903
  3. BERIZYM (ASPERGILLUS ORYZAE EXTRACT (+) CELLULASE (+) LIPASE (+) PANCR [Concomitant]
     Indication: PROPHYLAXIS
     Dosage: 1 G, TID. FORMULATION: GR
     Route: 048
  4. AMLODIN (AMLODIPINE BESYLATE) [Concomitant]
     Active Substance: AMLODIPINE BESYLATE
     Indication: HYPERTENSION
     Dosage: 5 MG, QD. FORMULATION: POR
     Route: 048
     Dates: end: 20140804
  5. MAGLAX (MAGNESIUM OXIDE) [Concomitant]
     Active Substance: MAGNESIUM OXIDE
     Indication: PROPHYLAXIS
     Dosage: 500 MG, TID. FORMULATION: POR
     Route: 048
  6. ALLEGRA [Concomitant]
     Active Substance: FEXOFENADINE HYDROCHLORIDE
     Indication: PROPHYLAXIS
     Dosage: 60 MG, BID. FORMULATION: POR
     Route: 048
  7. INTELENCE [Suspect]
     Active Substance: ETRAVIRINE
     Indication: HIV INFECTION
     Dosage: 400 MG, QD
     Route: 048
     Dates: start: 20120903
  8. OLMETEC [Concomitant]
     Active Substance: OLMESARTAN MEDOXOMIL
     Indication: HYPERTENSION
     Dosage: DOSAGE TEST: 20-40MG, QD. FORMULATION: POR
     Route: 048
     Dates: end: 20140804
  9. PRONON [Concomitant]
     Active Substance: PROPAFENONE
     Indication: ARRHYTHMIA
     Dosage: 100 MG, TID. FORMULATION: POR
     Route: 048
  10. RALTEGRAVIR POTASSIUM [Suspect]
     Active Substance: RALTEGRAVIR POTASSIUM
     Indication: HIV INFECTION
     Dosage: 800 MG, QD
     Route: 048
     Dates: start: 20110425
  11. CELSENTRI [Suspect]
     Active Substance: MARAVIROC
     Indication: HIV INFECTION
     Dosage: 600 MG, QD
     Route: 048
     Dates: start: 20110425, end: 20120902

REACTIONS (3)
  - Dehydration [Recovered/Resolved]
  - Nasopharyngitis [Unknown]
  - Prerenal failure [Recovered/Resolved]

NARRATIVE: CASE EVENT DATE: 201407
